FAERS Safety Report 9499488 (Version 1)
Quarter: 2013Q3

REPORT INFORMATION
  Report Type: Spontaneous
  Country: GB (occurrence: GB)
  Receive Date: 20130905
  Receipt Date: 20130905
  Transmission Date: 20140515
  Serious: Yes (Hospitalization, Disabling, Other)
  Sender: FDA-Public Use
  Company Number: GB-JNJFOC-20130900968

PATIENT
  Age: 26 Year
  Sex: Female
  Weight: 72.57 kg

DRUGS (4)
  1. NICORETTE INHALER [Suspect]
     Route: 055
  2. NICORETTE INHALER [Suspect]
     Indication: SMOKING CESSATION THERAPY
     Route: 055
     Dates: start: 20130819, end: 20130820
  3. LAMOTRIGINE [Concomitant]
     Indication: PRODUCT USED FOR UNKNOWN INDICATION
     Route: 065
  4. OXCARBAZEPINE [Concomitant]
     Indication: PRODUCT USED FOR UNKNOWN INDICATION
     Route: 065

REACTIONS (7)
  - Urticaria [Not Recovered/Not Resolved]
  - Conjunctivitis bacterial [Not Recovered/Not Resolved]
  - Oral candidiasis [Not Recovered/Not Resolved]
  - Mouth ulceration [Not Recovered/Not Resolved]
  - Pyrexia [Not Recovered/Not Resolved]
  - Eye swelling [Not Recovered/Not Resolved]
  - Tachycardia [Not Recovered/Not Resolved]
